FAERS Safety Report 6555685-0 (Version None)
Quarter: 2010Q1

REPORT INFORMATION
  Report Type: 
  Country: None (occurrence: None)
  Receive Date: 20100128
  Receipt Date: 20100121
  Transmission Date: 20100710
  Serious: No
  Sender: FDA-Public Use
  Company Number: PHHY2009JP45942

PATIENT
  Age: 51 Year
  Sex: Female

DRUGS (1)
  1. FEMARA [Suspect]
     Indication: BREAST CANCER
     Dosage: UNK
     Route: 048

REACTIONS (5)
  - DYSACUSIS [None]
  - EAR DISCOMFORT [None]
  - INNER EAR DISORDER [None]
  - TINNITUS [None]
  - VESTIBULAR DISORDER [None]
